FAERS Safety Report 7892174-5 (Version None)
Quarter: 2011Q4

REPORT INFORMATION
  Report Type: 
  Country: None (occurrence: None)
  Receive Date: 20111104
  Receipt Date: 20111025
  Transmission Date: 20120403
  Serious: Yes (Other)
  Sender: FDA-Public Use
  Company Number: US-ASTRAZENECA-2011SE36955

PATIENT
  Age: 64 Year
  Sex: Male
  Weight: 96 kg

DRUGS (4)
  1. TOPROL-XL [Concomitant]
     Route: 048
  2. SOLU-MEDROL [Concomitant]
  3. CRESTOR [Suspect]
     Route: 048
  4. TOPROL-XL [Concomitant]
     Route: 048

REACTIONS (2)
  - DIABETIC NEPHROPATHY [None]
  - RENAL FAILURE CHRONIC [None]
